FAERS Safety Report 11239398 (Version 1)
Quarter: 2015Q3

REPORT INFORMATION
  Report Type: Spontaneous
  Country: JP (occurrence: JP)
  Receive Date: 20150706
  Receipt Date: 20150706
  Transmission Date: 20151125
  Serious: Yes (Death, Other)
  Sender: FDA-Public Use
  Company Number: JP-CIPLA LTD.-2015JP05242

PATIENT

DRUGS (8)
  1. GEMCITABINE [Suspect]
     Active Substance: GEMCITABINE\GEMCITABINE HYDROCHLORIDE
     Indication: METASTASES TO LYMPH NODES
  2. WILMS TUMOR GENE 1 (WT1) PEPTIDE-PULSED DENDRITIC CELL VACCINATION [Suspect]
     Active Substance: INVESTIGATIONAL PRODUCT
     Indication: METASTASES TO LIVER
     Dosage: 1 X 10^7 CELLS ON DAYS 8 AND 22, EVERY 4 WEEKS FOR 2 TIMES POST PROTOCOL
     Route: 023
  3. GEMCITABINE [Suspect]
     Active Substance: GEMCITABINE\GEMCITABINE HYDROCHLORIDE
     Indication: PANCREATIC CARCINOMA
     Dosage: 1000 MG/M2 ON DAYS 1, 8 AND 15, EVERY 4 WEEKS
  4. GEMCITABINE [Suspect]
     Active Substance: GEMCITABINE\GEMCITABINE HYDROCHLORIDE
     Indication: METASTASES TO SPLEEN
  5. GEMCITABINE [Suspect]
     Active Substance: GEMCITABINE\GEMCITABINE HYDROCHLORIDE
     Indication: METASTASES TO LIVER
  6. WILMS TUMOR GENE 1 (WT1) PEPTIDE-PULSED DENDRITIC CELL VACCINATION [Suspect]
     Active Substance: INVESTIGATIONAL PRODUCT
     Indication: METASTASES TO LYMPH NODES
  7. WILMS TUMOR GENE 1 (WT1) PEPTIDE-PULSED DENDRITIC CELL VACCINATION [Suspect]
     Active Substance: INVESTIGATIONAL PRODUCT
     Indication: PANCREATIC CARCINOMA
     Dosage: 1 X 10^7 CELLS ON DAYS 8 AND 22, EVERY 4 WEEKS FOR 2 TIMES DURING PROTOCOL
     Route: 023
  8. WILMS TUMOR GENE 1 (WT1) PEPTIDE-PULSED DENDRITIC CELL VACCINATION [Suspect]
     Active Substance: INVESTIGATIONAL PRODUCT
     Indication: METASTASES TO SPLEEN

REACTIONS (2)
  - Death [Fatal]
  - Disease progression [Unknown]
